FAERS Safety Report 6836419-9 (Version None)
Quarter: 2010Q3

REPORT INFORMATION
  Report Type: 
  Country: None (occurrence: None)
  Receive Date: 20100713
  Receipt Date: 20100705
  Transmission Date: 20110219
  Serious: Yes (Other)
  Sender: FDA-Public Use
  Company Number: ES-PFIZER INC-2010083320

PATIENT
  Age: 67 Year
  Sex: Female

DRUGS (1)
  1. DALACIN [Suspect]
     Indication: TOOTH INFECTION
     Dosage: 300 MG, 3X/DAY
     Route: 048
     Dates: start: 20100119, end: 20100122

REACTIONS (2)
  - ASTHMA [None]
  - DYSPNOEA [None]
